FAERS Safety Report 7370445-9 (Version None)
Quarter: 2011Q1

REPORT INFORMATION
  Report Type: 
  Country: None (occurrence: None)
  Receive Date: 20110323
  Receipt Date: 20090930
  Transmission Date: 20110831
  Serious: Yes (Death, Other)
  Sender: FDA-Public Use
  Company Number: US-BAYER-200934780NA

PATIENT
  Sex: Male
  Weight: 90.703 kg

DRUGS (6)
  1. TRASYLOL [Suspect]
     Indication: TRICUSPID VALVE REPAIR
  2. TRASYLOL [Suspect]
     Indication: CORONARY ARTERY BYPASS
     Dosage: UNK
     Dates: start: 20030521
  3. LASIX [Concomitant]
     Dosage: UNK
     Dates: start: 20030401
  4. SPIRONOLACTONE [Concomitant]
     Dosage: UNK
     Dates: start: 20030401
  5. TRASYLOL [Suspect]
     Indication: MITRAL VALVE REPLACEMENT
  6. ENALAPRIL MALEATE [Concomitant]
     Dosage: UNK
     Dates: start: 20030401

REACTIONS (15)
  - DEPRESSION [None]
  - FEAR [None]
  - RENAL FAILURE [None]
  - ANHEDONIA [None]
  - DISABILITY [None]
  - ANXIETY [None]
  - MULTI-ORGAN FAILURE [None]
  - INJURY [None]
  - NERVOUSNESS [None]
  - EMOTIONAL DISTRESS [None]
  - UNEVALUABLE EVENT [None]
  - RENAL INJURY [None]
  - PAIN [None]
  - FEAR OF DEATH [None]
  - DEATH [None]
